FAERS Safety Report 6361450-X (Version None)
Quarter: 2009Q3

REPORT INFORMATION
  Report Type: 
  Country: None (occurrence: None)
  Receive Date: 20090918
  Receipt Date: 20090907
  Transmission Date: 20100115
  Serious: Yes (Hospitalization)
  Sender: FDA-Public Use
  Company Number: IL-ELI_LILLY_AND_COMPANY-IL200909001462

PATIENT
  Sex: Female

DRUGS (3)
  1. ALIMTA [Suspect]
     Indication: LUNG NEOPLASM MALIGNANT
     Dosage: UNK, UNKNOWN
  2. AVASTIN [Concomitant]
     Dosage: UNK, UNKNOWN
  3. CARBOPLATIN [Concomitant]
     Dosage: UNK, UNKNOWN

REACTIONS (1)
  - HAEMOLYSIS [None]
